FAERS Safety Report 9343641 (Version 1)
Quarter: 2013Q2

REPORT INFORMATION
  Report Type: Spontaneous
  Country: IT (occurrence: None)
  Receive Date: 20130610
  Receipt Date: 20130610
  Transmission Date: 20140414
  Serious: Yes (Life-Threatening)
  Sender: FDA-Public Use
  Company Number: VAL_02558_2013

PATIENT
  Age: 3 Year
  Sex: Male

DRUGS (1)
  1. METHERGINE [Suspect]
     Indication: PRODUCT USED FOR UNKNOWN INDICATION
     Dosage: 2 DAYS UNTIL NOT CONTINUING?
     Route: 048

REACTIONS (6)
  - Wrong drug administered [None]
  - Metabolic acidosis [None]
  - Apnoea [None]
  - Cardiac arrest [None]
  - Cyanosis [None]
  - Coma [None]
